FAERS Safety Report 5067279-7 (Version None)
Quarter: 2006Q3

REPORT INFORMATION
  Report Type: 
  Country: None (occurrence: None)
  Receive Date: 20060801
  Receipt Date: 20060727
  Transmission Date: 20061208
  Serious: Yes (Hospitalization)
  Sender: FDA-Public Use
  Company Number: SE-MERCK-0607SWE00015

PATIENT
  Age: 71 Year
  Sex: Female

DRUGS (6)
  1. FOSAMAX [Suspect]
     Indication: OSTEOPOROSIS
     Route: 048
     Dates: start: 20020613
  2. GLIPIZIDE [Concomitant]
     Route: 065
  3. SPIRONOLACTONE [Concomitant]
     Route: 065
  4. FELODIPINE [Concomitant]
     Route: 065
  5. CALCIUM CARBONATE AND CHOLECALCIFEROL [Concomitant]
     Route: 065
  6. SIMVASTATIN [Concomitant]
     Route: 065

REACTIONS (5)
  - FRACTURE [None]
  - INFECTION [None]
  - LIP AND/OR ORAL CAVITY CANCER [None]
  - OSTEONECROSIS [None]
  - PERIODONTITIS [None]
